FAERS Safety Report 16793781 (Version 1)
Quarter: 2019Q3

REPORT INFORMATION
  Report Type: Spontaneous
  Country: US (occurrence: US)
  Receive Date: 20190911
  Receipt Date: 20190911
  Transmission Date: 20191005
  Serious: Yes (Hospitalization, Other)
  Sender: FDA-Public Use
  Company Number: US-TITAN PHARMACEUTICALS-2019TAN00046

PATIENT
  Age: 2 Week
  Sex: Male

DRUGS (1)
  1. BUPRENORPHINE. [Suspect]
     Active Substance: BUPRENORPHINE
     Dosage: PATIENT^S MOTHER TAKING PRODUCT AT 8 MG TWICE DAILY FOR SEVERAL MONTHS
     Route: 063

REACTIONS (7)
  - Somnolence [Recovering/Resolving]
  - Bradycardia [Recovering/Resolving]
  - Maternal exposure during breast feeding [Recovered/Resolved]
  - Poor feeding infant [Recovering/Resolving]
  - Miosis [Recovering/Resolving]
  - Hypoglycaemia [Recovering/Resolving]
  - Toxicity to various agents [Recovering/Resolving]
